FAERS Safety Report 21963973 (Version 2)
Quarter: 2023Q1

REPORT INFORMATION
  Report Type: Report from Study
  Country: US (occurrence: US)
  Receive Date: 20230207
  Receipt Date: 20230307
  Transmission Date: 20230417
  Serious: Yes (Other)
  Sender: FDA-Public Use
  Company Number: US-BAYER-2023P006332

PATIENT
  Age: 58 Year
  Sex: Male

DRUGS (1)
  1. NUBEQA [Suspect]
     Active Substance: DAROLUTAMIDE
     Indication: Prostate cancer
     Dosage: 600 MG, BID (WITH FOOD)
     Route: 048

REACTIONS (6)
  - Liver injury [None]
  - Chromaturia [Not Recovered/Not Resolved]
  - Arthralgia [Recovering/Resolving]
  - Medical procedure [None]
  - Product dose omission issue [None]
  - Product availability issue [None]

NARRATIVE: CASE EVENT DATE: 20230126
